FAERS Safety Report 5038698-X (Version None)
Quarter: 2006Q2

REPORT INFORMATION
  Report Type: 
  Country: None (occurrence: None)
  Receive Date: 20060629
  Receipt Date: 20060328
  Transmission Date: 20061013
  Serious: No
  Sender: FDA-Public Use
  Company Number: US-BRISTOL-MYERS SQUIBB COMPANY-13328992

PATIENT
  Age: 42 Year
  Sex: Male
  Weight: 116 kg

DRUGS (5)
  1. REYATAZ [Suspect]
     Indication: HIV INFECTION
     Dates: start: 20060303
  2. SULFAMETHOXAZOLE [Suspect]
     Dates: end: 20060301
  3. TRUVADA [Concomitant]
  4. NORVIR [Concomitant]
  5. COLCHICINE [Concomitant]

REACTIONS (2)
  - DERMATITIS ACNEIFORM [None]
  - JOINT SWELLING [None]
